FAERS Safety Report 8133580-3 (Version None)
Quarter: 2012Q1

REPORT INFORMATION
  Report Type: 
  Country: None (occurrence: None)
  Receive Date: 20120213
  Receipt Date: 20120131
  Transmission Date: 20120608
  Serious: Yes (Hospitalization, Other)
  Sender: FDA-Public Use
  Company Number: US-ELI_LILLY_AND_COMPANY-US201202002906

PATIENT
  Age: 56 Year
  Sex: Female

DRUGS (5)
  1. KEPPRA [Concomitant]
     Indication: PROPHYLAXIS
     Dosage: 500 MG, BID
  2. PROZAC [Suspect]
  3. TYLENOL                                 /SCH/ [Concomitant]
     Indication: HEADACHE
  4. ZOFRAN [Concomitant]
  5. ATIVAN [Concomitant]

REACTIONS (11)
  - DEHYDRATION [None]
  - ENCEPHALOPATHY [None]
  - VISUAL IMPAIRMENT [None]
  - VISION BLURRED [None]
  - OROPHARYNGEAL PAIN [None]
  - VERTIGO [None]
  - NERVOUSNESS [None]
  - DECREASED APPETITE [None]
  - NAUSEA [None]
  - SLEEP DISORDER [None]
  - VIRAL INFECTION [None]
